FAERS Safety Report 5349941-1 (Version None)
Quarter: 2007Q2

REPORT INFORMATION
  Report Type: 
  Country: None (occurrence: None)
  Receive Date: 20070607
  Receipt Date: 20070604
  Transmission Date: 20071010
  Serious: Yes (Hospitalization)
  Sender: FDA-Public Use
  Company Number: US-GENENTECH-241567

PATIENT
  Sex: Female

DRUGS (1)
  1. XOLAIR [Suspect]
     Indication: DRUG USE FOR UNKNOWN INDICATION
     Dosage: 375 UNK, UNK
     Route: 058

REACTIONS (4)
  - ANAPHYLACTIC REACTION [None]
  - ASTHENIA [None]
  - DIZZINESS [None]
  - PRURITUS [None]
